FAERS Safety Report 9228165 (Version 1)
Quarter: 2013Q2

REPORT INFORMATION
  Report Type: Spontaneous
  Country: US (occurrence: None)
  Receive Date: 20130411
  Receipt Date: 20130411
  Transmission Date: 20140414
  Serious: Yes (Other)
  Sender: FDA-Public Use
  Company Number: None

PATIENT
  Age: 61 Year
  Sex: Female
  Weight: 74.84 kg

DRUGS (1)
  1. NYSTATIN [Suspect]
     Indication: ORAL INFECTION
     Dosage: 5 ML 4X^S
     Dates: start: 20130201

REACTIONS (12)
  - Sleep disorder [None]
  - Toothache [None]
  - Palpitations [None]
  - Chest discomfort [None]
  - Dyspnoea [None]
  - Device malfunction [None]
  - Weight decreased [None]
  - Thinking abnormal [None]
  - Abdominal pain upper [None]
  - Muscle tightness [None]
  - Dysgeusia [None]
  - Insomnia [None]
